FAERS Safety Report 7254883-0 (Version None)
Quarter: 2011Q1

REPORT INFORMATION
  Report Type: 
  Country: None (occurrence: None)
  Receive Date: 20110129
  Receipt Date: 20100322
  Transmission Date: 20110831
  Serious: No
  Sender: FDA-Public Use
  Company Number: US-ABBOTT-10P-163-0633537-00

PATIENT
  Sex: Female

DRUGS (4)
  1. LOVASTATIN [Concomitant]
     Indication: BLOOD CHOLESTEROL INCREASED
     Dosage: AS DIRECTED
  2. HUMIRA [Suspect]
     Indication: CROHN'S DISEASE
     Route: 058
     Dates: start: 20091001, end: 20091201
  3. LISINOPRIL [Concomitant]
     Indication: HYPERTENSION
     Dosage: AS DIRECTED
  4. HUMIRA [Suspect]
     Route: 058
     Dates: start: 20091201

REACTIONS (9)
  - COUGH [None]
  - NASOPHARYNGITIS [None]
  - INJECTION SITE VESICLES [None]
  - ARTHRITIS [None]
  - DIARRHOEA [None]
  - OROPHARYNGEAL PAIN [None]
  - OEDEMA PERIPHERAL [None]
  - INJECTION SITE ERYTHEMA [None]
  - RASH [None]
